FAERS Safety Report 5570640-5 (Version None)
Quarter: 2007Q4

REPORT INFORMATION
  Report Type: 
  Country: None (occurrence: None)
  Receive Date: 20071221
  Receipt Date: 20050927
  Transmission Date: 20080405
  Serious: Yes (Other)
  Sender: FDA-Public Use
  Company Number: FR-JNJFOC-20071108137

PATIENT
  Age: 60 Year
  Sex: Male
  Weight: 75 kg

DRUGS (2)
  1. HALOPERIDOL [Suspect]
     Indication: DELUSIONAL DISORDER, UNSPECIFIED TYPE
     Route: 048
  2. ORAL HYPOGLYCAEMICS [Concomitant]
     Indication: DIABETES MELLITUS
     Route: 065

REACTIONS (2)
  - COGNITIVE DISORDER [None]
  - WEIGHT INCREASED [None]
